FAERS Safety Report 22917570 (Version 2)
Quarter: 2024Q3

REPORT INFORMATION
  Report Type: Report from Study
  Country: US (occurrence: US)
  Receive Date: 20230907
  Receipt Date: 20240925
  Transmission Date: 20241017
  Serious: Yes (Other)
  Sender: ABBVIE
  Company Number: US-ABBVIE-5397170

PATIENT
  Sex: Female

DRUGS (2)
  1. HUMIRA [Suspect]
     Active Substance: ADALIMUMAB
     Indication: Uveitis
     Dosage: CITRATE FREE
     Route: 058
     Dates: start: 20190907
  2. HUMIRA [Suspect]
     Active Substance: ADALIMUMAB
     Dosage: CITRATE FREE
     Route: 058
     Dates: start: 20190505

REACTIONS (5)
  - Blindness [Unknown]
  - Photophobia [Not Recovered/Not Resolved]
  - Vitreous floaters [Unknown]
  - Visual impairment [Unknown]
  - Photopsia [Unknown]

NARRATIVE: CASE EVENT DATE: 20220101
